FAERS Safety Report 9543609 (Version 1)
Quarter: 2013Q2

REPORT INFORMATION
  Report Type: Spontaneous
  Country: US (occurrence: None)
  Receive Date: 20130531
  Receipt Date: 20130531
  Transmission Date: 20140414
  Serious: Yes (Death)
  Sender: FDA-Public Use
  Company Number: KV201300043

PATIENT
  Sex: 0

DRUGS (1)
  1. MAKENA [Suspect]
     Indication: EXPOSURE DURING PREGNANCY

REACTIONS (2)
  - Foetal death [None]
  - Maternal drugs affecting foetus [None]
